FAERS Safety Report 8733290 (Version 4)
Quarter: 2012Q4

REPORT INFORMATION
  Report Type: 
  Country: US (occurrence: US)
  Receive Date: 20120821
  Receipt Date: 20120918
  Transmission Date: 20130627
  Serious: No
  Sender: FDA-Public Use
  Company Number: US-BIOGENIDEC-2012BI032053

PATIENT
  Age: 40 Year
  Sex: Female

DRUGS (5)
  1. TYSABRI [Suspect]
     Indication: MULTIPLE SCLEROSIS
     Route: 042
     Dates: start: 20120802
  2. PAIN MEDICATION (NOS) [Concomitant]
     Indication: FIBROMYALGIA
  3. MEDICATION (NOS) [Concomitant]
     Indication: MYASTHENIA GRAVIS
  4. TRILEPTAL [Concomitant]
     Indication: MYASTHENIA GRAVIS
  5. SOMA [Concomitant]
     Indication: INFLAMMATION

REACTIONS (16)
  - Migraine [Not Recovered/Not Resolved]
  - Disorientation [Recovered/Resolved]
  - Influenza like illness [Not Recovered/Not Resolved]
  - Decreased appetite [Not Recovered/Not Resolved]
  - Lymphadenopathy [Not Recovered/Not Resolved]
  - Syncope [Recovered/Resolved]
  - Incoherent [Recovered/Resolved]
  - Neck pain [Recovered/Resolved]
  - Loss of consciousness [Recovered/Resolved]
  - Pain in extremity [Not Recovered/Not Resolved]
  - Fall [Recovered/Resolved]
  - Heart rate decreased [Recovered/Resolved]
  - Blood pressure decreased [Recovered/Resolved]
  - Headache [Not Recovered/Not Resolved]
  - Fatigue [Not Recovered/Not Resolved]
  - Arthralgia [Not Recovered/Not Resolved]
